FAERS Safety Report 20033509 (Version 2)
Quarter: 2022Q1

REPORT INFORMATION
  Report Type: Report from Study
  Country: US (occurrence: US)
  Receive Date: 20211104
  Receipt Date: 20220105
  Transmission Date: 20220423
  Serious: Yes (Hospitalization)
  Sender: FDA-Public Use
  Company Number: US-UCBSA-2021051241

PATIENT
  Sex: Male

DRUGS (2)
  1. BRIVARACETAM [Suspect]
     Active Substance: BRIVARACETAM
     Indication: Seizure
     Dosage: 100 MILLIGRAM, 2X/DAY (BID)
     Route: 048
  2. BRIVARACETAM [Suspect]
     Active Substance: BRIVARACETAM
     Dosage: 150 MILLIGRAM, 2X/DAY (BID)
     Route: 048

REACTIONS (3)
  - Back injury [Not Recovered/Not Resolved]
  - Off label use [Unknown]
  - Prescribed overdose [Unknown]
